FAERS Safety Report 5443020-0 (Version None)
Quarter: 2007Q3

REPORT INFORMATION
  Report Type: 
  Country: None (occurrence: None)
  Receive Date: 20070905
  Receipt Date: 20070824
  Transmission Date: 20080115
  Serious: Yes (Other)
  Sender: FDA-Public Use
  Company Number: PHEH2007US11702

PATIENT
  Sex: Male

DRUGS (2)
  1. FLOMAX [Suspect]
  2. ENABLEX [Suspect]
     Indication: INCONTINENCE
     Dates: start: 20070601

REACTIONS (3)
  - DRUG INEFFECTIVE [None]
  - DYSURIA [None]
  - URINARY HESITATION [None]
